FAERS Safety Report 22170759 (Version 2)
Quarter: 2023Q2

REPORT INFORMATION
  Report Type: Report from Study
  Country: EG (occurrence: EG)
  Receive Date: 20230404
  Receipt Date: 20230411
  Transmission Date: 20230721
  Serious: Yes (Other)
  Sender: FDA-Public Use
  Company Number: EG-002147023-NVSC2023EG073838

PATIENT
  Age: 39 Year
  Sex: Female

DRUGS (4)
  1. KISQALI [Suspect]
     Active Substance: RIBOCICLIB
     Indication: Breast cancer metastatic
     Dosage: 3 DOSAGE FORM, QD (FOR 21 DAYS AND 1 WEEK OFF)
     Route: 048
     Dates: start: 201808, end: 201810
  2. FEMARA [Suspect]
     Active Substance: LETROZOLE
     Indication: Breast cancer metastatic
     Dosage: 1 DOSAGE FORM, QD
     Route: 065
     Dates: start: 201808, end: 201810
  3. FASLODEX [Concomitant]
     Active Substance: FULVESTRANT
     Indication: Hormone therapy
     Dosage: 2 DOSAGE FORM, QD (2 INJECTIONS) (STARTED FROM 1 YEAR AND 4 MONTHS)
     Route: 065
  4. ZOLADEX [Concomitant]
     Active Substance: GOSERELIN ACETATE
     Indication: Neoplasm malignant
     Dosage: UNK (SHE TOOK IT AFTER STOPPING CHEMOTHERAPY)
     Route: 065

REACTIONS (2)
  - Neoplasm [Not Recovered/Not Resolved]
  - Drug ineffective [Not Recovered/Not Resolved]

NARRATIVE: CASE EVENT DATE: 20181001
